FAERS Safety Report 6715376-X (Version None)
Quarter: 2010Q2

REPORT INFORMATION
  Report Type: 
  Country: None (occurrence: None)
  Receive Date: 20100507
  Receipt Date: 20100125
  Transmission Date: 20101027
  Serious: No
  Sender: FDA-Public Use
  Company Number: US-BAYER-201012657NA

PATIENT
  Age: 48 Year
  Sex: Female
  Weight: 77 kg

DRUGS (9)
  1. ULTRAVIST 300 [Suspect]
     Indication: COMPUTERISED TOMOGRAM THORAX
     Dosage: TOTAL DAILY DOSE: 90 ML  UNIT DOSE: 200 ML
  2. ZOMETA [Concomitant]
  3. ATENOLOL [Concomitant]
  4. CEPHALEXIN [Concomitant]
  5. ARIMIDEX [Concomitant]
  6. HERCEPTIN [Concomitant]
  7. HYDROCHLOROTHIAZIDE [Concomitant]
  8. POTASSIUM CHLORIDE [Concomitant]
  9. OXYCONTIN [Concomitant]

REACTIONS (3)
  - ABASIA [None]
  - ASTHENIA [None]
  - LACRIMATION INCREASED [None]
